FAERS Safety Report 22284248 (Version 1)
Quarter: 2023Q2

REPORT INFORMATION
  Report Type: Spontaneous
  Country: US (occurrence: None)
  Receive Date: 20230503
  Receipt Date: 20230503
  Transmission Date: 20230722
  Serious: Yes (Hospitalization)
  Sender: FDA-Public Use
  Company Number: None

PATIENT
  Age: 89 Year
  Sex: Female
  Weight: 72.3 kg

DRUGS (1)
  1. PHENYLEPHRINE HYDROCHLORIDE\TROPICAMIDE [Suspect]
     Active Substance: PHENYLEPHRINE HYDROCHLORIDE\TROPICAMIDE
     Route: 047
     Dates: start: 20230429, end: 20230429

REACTIONS (5)
  - Unresponsive to stimuli [None]
  - Respiratory arrest [None]
  - Blood pressure decreased [None]
  - Confusional state [None]
  - Disorientation [None]

NARRATIVE: CASE EVENT DATE: 20230429
